FAERS Safety Report 6248584-5 (Version None)
Quarter: 2009Q2

REPORT INFORMATION
  Report Type: 
  Country: None (occurrence: None)
  Receive Date: 20090624
  Receipt Date: 20090624
  Transmission Date: 20091009
  Serious: Yes (Hospitalization)
  Sender: FDA-Public Use
  Company Number: None

PATIENT
  Age: 61 Year
  Sex: Male
  Weight: 161 kg

DRUGS (9)
  1. DIGOXIN [Suspect]
     Indication: ATRIAL FIBRILLATION
     Dosage: 0.25MG PO DAILY (HOME)
     Route: 048
  2. ZOLOFT [Concomitant]
  3. PANTOPRAZOLE SODIUM [Concomitant]
  4. MIRTAZAPINE [Concomitant]
  5. LEVOTHYROXINE SODIUM [Concomitant]
  6. GABAPENTIN [Concomitant]
  7. ASPIRIN [Concomitant]
  8. ATENOLOL [Concomitant]
  9. DILTIAZEM [Concomitant]

REACTIONS (10)
  - AGITATION [None]
  - BLOOD CREATININE INCREASED [None]
  - BLOOD PRESSURE SYSTOLIC DECREASED [None]
  - BRADYCARDIA [None]
  - CHILLS [None]
  - MENTAL STATUS CHANGES [None]
  - PYREXIA [None]
  - RENAL INJURY [None]
  - UROSEPSIS [None]
  - VISION BLURRED [None]
